FAERS Safety Report 7506452-2 (Version None)
Quarter: 2011Q2

REPORT INFORMATION
  Report Type: 
  Country: None (occurrence: None)
  Receive Date: 20110526
  Receipt Date: 20110517
  Transmission Date: 20111010
  Serious: Yes (Hospitalization)
  Sender: FDA-Public Use
  Company Number: GR-BAXTER-2011BH016757

PATIENT
  Age: 12 Year
  Sex: Male
  Weight: 57 kg

DRUGS (5)
  1. GAMMAGARD LIQUID [Suspect]
     Indication: EPILEPSY
     Route: 042
     Dates: start: 20110513, end: 20110513
  2. GAMMAGARD LIQUID [Suspect]
     Indication: OFF LABEL USE
     Route: 042
     Dates: start: 20110513, end: 20110513
  3. CLONAZEPAM [Concomitant]
     Indication: PRODUCT USED FOR UNKNOWN INDICATION
     Route: 048
  4. DEPAKENE [Concomitant]
     Indication: PRODUCT USED FOR UNKNOWN INDICATION
     Route: 048
  5. PREZOLON [Concomitant]
     Indication: PRODUCT USED FOR UNKNOWN INDICATION
     Route: 048

REACTIONS (1)
  - URTICARIA [None]
